FAERS Safety Report 22113064 (Version 1)
Quarter: 2023Q1

REPORT INFORMATION
  Report Type: Report from Study
  Country: PL (occurrence: PL)
  Receive Date: 20230320
  Receipt Date: 20230320
  Transmission Date: 20230417
  Serious: Yes (Other)
  Sender: FDA-Public Use
  Company Number: PL-BAYER-2023A035534

PATIENT
  Age: 82 Year
  Sex: Female

DRUGS (1)
  1. ILOPROST [Suspect]
     Active Substance: ILOPROST
     Indication: Product used for unknown indication
     Route: 055

REACTIONS (3)
  - Wrong technique in product usage process [Unknown]
  - Dyspnoea [Unknown]
  - Fatigue [Unknown]

NARRATIVE: CASE EVENT DATE: 20230224
